FAERS Safety Report 13474604 (Version 3)
Quarter: 2017Q3

REPORT INFORMATION
  Report Type: Spontaneous
  Country: FR (occurrence: FR)
  Receive Date: 20170424
  Receipt Date: 20170712
  Transmission Date: 20171127
  Serious: Yes (Death, Life-Threatening, Hospitalization, Other)
  Sender: FDA-Public Use
  Company Number: FR-GILEAD-2017-0268033

PATIENT
  Age: 66 Year
  Sex: Male

DRUGS (7)
  1. PREZISTA [Concomitant]
     Active Substance: DARUNAVIR ETHANOLATE
     Indication: HIV INFECTION
  2. NORVIR [Concomitant]
     Active Substance: RITONAVIR
     Indication: HIV INFECTION
  3. SOTALOL. [Concomitant]
     Active Substance: SOTALOL
  4. RIBAVIRIN. [Suspect]
     Active Substance: RIBAVIRIN
     Indication: CHRONIC HEPATITIS C
     Dosage: 4 DF, QD
     Route: 048
     Dates: start: 201607
  5. HARVONI [Suspect]
     Active Substance: LEDIPASVIR\SOFOSBUVIR
     Indication: CHRONIC HEPATITIS C
     Dosage: 1 DF, QD
     Route: 048
     Dates: start: 201607
  6. ASPEGIC [Concomitant]
     Active Substance: ASPIRIN DL-LYSINE
  7. KIVEXA [Concomitant]
     Active Substance: ABACAVIR SULFATE\LAMIVUDINE
     Indication: HIV INFECTION

REACTIONS (6)
  - Weight decreased [Unknown]
  - Pulmonary arterial hypertension [Fatal]
  - Asthenia [Unknown]
  - Cardio-respiratory arrest [Recovered/Resolved]
  - Right ventricular failure [Fatal]
  - Mitral valve incompetence [Fatal]

NARRATIVE: CASE EVENT DATE: 20160923
